FAERS Safety Report 10907825 (Version 1)
Quarter: 2015Q1

REPORT INFORMATION
  Report Type: Spontaneous
  Country: US (occurrence: US)
  Receive Date: 20150312
  Receipt Date: 20150312
  Transmission Date: 20150721
  Serious: No
  Sender: FDA-Public Use
  Company Number: US-INCYTE CORPORATION-2014IN003831

PATIENT
  Age: 62 Year
  Sex: Female
  Weight: 60.32 kg

DRUGS (5)
  1. PEPCID [Concomitant]
     Active Substance: FAMOTIDINE
  2. LORTAB [Concomitant]
     Active Substance: ACETAMINOPHEN\HYDROCODONE BITARTRATE
  3. NEURONTIN [Concomitant]
     Active Substance: GABAPENTIN
  4. JAKAFI [Suspect]
     Active Substance: RUXOLITINIB
     Indication: MYELOFIBROSIS
     Dosage: 20 MG, BID
     Dates: start: 20141106, end: 20141211
  5. LASIX [Concomitant]
     Active Substance: FUROSEMIDE

REACTIONS (5)
  - Headache [Recovering/Resolving]
  - Blood count abnormal [Recovering/Resolving]
  - Onychalgia [Recovering/Resolving]
  - Nail bed bleeding [Recovering/Resolving]
  - Stomatitis [Recovering/Resolving]

NARRATIVE: CASE EVENT DATE: 20141127
